FAERS Safety Report 12870204 (Version 3)
Quarter: 2018Q1

REPORT INFORMATION
  Report Type: Report from Study
  Country: US (occurrence: US)
  Receive Date: 20161020
  Receipt Date: 20180105
  Transmission Date: 20180508
  Serious: No
  Sender: FDA-Public Use
  Company Number: US-AMGEN-USASL2016125252

PATIENT
  Age: 49 Year
  Sex: Female

DRUGS (1)
  1. REPATHA [Suspect]
     Active Substance: EVOLOCUMAB
     Indication: BLOOD CHOLESTEROL ABNORMAL
     Dosage: 140 MG, Q3WK
     Route: 065

REACTIONS (5)
  - Faeces soft [Recovered/Resolved]
  - Decreased appetite [Recovered/Resolved]
  - Pain [Recovered/Resolved]
  - Influenza like illness [Recovered/Resolved]
  - Off label use [Unknown]
